FAERS Safety Report 8073959-1 (Version None)
Quarter: 2011Q4

REPORT INFORMATION
  Report Type: 
  Country: None (occurrence: None)
  Receive Date: 20111221
  Receipt Date: 20110301
  Transmission Date: 20120403
  Serious: Yes (Other)
  Sender: FDA-Public Use
  Company Number: PHHY2011US19487

PATIENT
  Sex: Male

DRUGS (7)
  1. VITAMIN B12 [Concomitant]
  2. EXJADE [Suspect]
     Indication: HAEMOCHROMATOSIS
     Dosage: 1500 MG, DAILY, ORAL
     Route: 048
     Dates: start: 20101129, end: 20110125
  3. CYCLOSPORINE [Concomitant]
  4. COUMADIN [Concomitant]
  5. LIPITOR [Concomitant]
  6. MESTINON [Concomitant]
  7. PREDNISONE TAB [Concomitant]

REACTIONS (1)
  - BLOOD CREATININE INCREASED [None]
